FAERS Safety Report 21632388 (Version 1)
Quarter: 2022Q4

REPORT INFORMATION
  Report Type: Spontaneous
  Country: US (occurrence: US)
  Receive Date: 20221123
  Receipt Date: 20221123
  Transmission Date: 20230112
  Serious: No
  Sender: FDA-Public Use
  Company Number: US-GSK-US2022171959

PATIENT
  Sex: Female

DRUGS (1)
  1. BREO ELLIPTA [Suspect]
     Active Substance: FLUTICASONE FUROATE\VILANTEROL TRIFENATATE
     Indication: Asthma
     Dosage: UNK

REACTIONS (9)
  - Illness [Not Recovered/Not Resolved]
  - Pain [Not Recovered/Not Resolved]
  - Burning sensation [Unknown]
  - Dyspepsia [Unknown]
  - Asthenia [Unknown]
  - Abdominal distension [Unknown]
  - Abdominal pain upper [Unknown]
  - Asthma [Unknown]
  - Insomnia [Unknown]
